FAERS Safety Report 14140593 (Version 2)
Quarter: 2018Q3

REPORT INFORMATION
  Report Type: Report from Study
  Country: US (occurrence: US)
  Receive Date: 20171030
  Receipt Date: 20180828
  Transmission Date: 20181010
  Serious: Yes (Other)
  Sender: FDA-Public Use
  Company Number: PHEH2017US034982

PATIENT
  Age: 43 Year
  Sex: Female

DRUGS (2)
  1. COSENTYX [Suspect]
     Active Substance: SECUKINUMAB
     Indication: PSORIATIC ARTHROPATHY
     Dosage: 150 MG, QMO
     Route: 058
     Dates: start: 201709
  2. COSENTYX [Suspect]
     Active Substance: SECUKINUMAB
     Indication: RHEUMATOID ARTHRITIS

REACTIONS (3)
  - Product use in unapproved indication [Unknown]
  - Drug ineffective [Unknown]
  - Tooth abscess [Unknown]

NARRATIVE: CASE EVENT DATE: 201709
